FAERS Safety Report 10751812 (Version 1)
Quarter: 2015Q1

REPORT INFORMATION
  Report Type: Spontaneous
  Country: IT (occurrence: None)
  Receive Date: 20150128
  Receipt Date: 20150128
  Transmission Date: 20150721
  Serious: Yes (Hospitalization)
  Sender: FDA-Public Use
  Company Number: 2015JUB00019

PATIENT
  Age: 46 Year
  Sex: Male

DRUGS (3)
  1. OLANZAPINE (OLANZAPINE) UNKNOWN [Suspect]
     Active Substance: OLANZAPINE
     Indication: PERSECUTORY DELUSION
     Dosage: 1X/DAY
  2. OLANZAPINE (OLANZAPINE) UNKNOWN [Suspect]
     Active Substance: OLANZAPINE
     Indication: SCHIZOAFFECTIVE DISORDER
     Dosage: 1X/DAY
  3. VALPROIC ACID. [Concomitant]
     Active Substance: VALPROIC ACID

REACTIONS (11)
  - Delusional perception [None]
  - Hallucination, visual [None]
  - Social avoidant behaviour [None]
  - Anhedonia [None]
  - Drug interaction [None]
  - Hallucination, auditory [None]
  - Depressed mood [None]
  - Disturbance in attention [None]
  - Terminal insomnia [None]
  - Fatigue [None]
  - Somatic hallucination [None]
